FAERS Safety Report 4316486-7 (Version None)
Quarter: 2004Q1

REPORT INFORMATION
  Report Type: 
  Country: None (occurrence: None)
  Receive Date: 20040311
  Receipt Date: 20040226
  Transmission Date: 20041129
  Serious: Yes (Other)
  Sender: FDA-Public Use
  Company Number: 233768

PATIENT
  Age: 40 Year
  Sex: Male
  Weight: 82.5 kg

DRUGS (4)
  1. INSULATARD (INSULIN HUMAN) SUSPENSION FOR INJECTION, 100IU/ML [Suspect]
     Indication: DIABETES MELLITUS
     Dosage: 60 IU, QD, SUBCUTANEOUS
     Route: 058
     Dates: start: 20030920, end: 20031120
  2. METFORMIN HCL [Concomitant]
  3. GLICLAZIDE [Concomitant]
  4. ROSIGLITAZONE (ROSIGLITAZONE) [Concomitant]

REACTIONS (3)
  - HYPERHIDROSIS [None]
  - PRURITUS [None]
  - TACHYCARDIA [None]
